FAERS Safety Report 8510049 (Version 2)
Quarter: 2013Q2

REPORT INFORMATION
  Report Type: Spontaneous
  Country: BR (occurrence: BR)
  Receive Date: 20120413
  Receipt Date: 20130517
  Transmission Date: 20140414
  Serious: Yes (Other)
  Sender: FDA-Public Use
  Company Number: BR-AMGEN-BRASP2012022174

PATIENT
  Age: 47 Year
  Sex: Female
  Weight: 64.5 kg

DRUGS (8)
  1. ENBREL [Suspect]
     Indication: RHEUMATOID ARTHRITIS
     Dosage: 50 MG, ONCE WEEKLY
     Route: 058
     Dates: start: 20111212, end: 201206
  2. ENBREL [Suspect]
     Dosage: 50 MG, WEEKLY
     Route: 058
     Dates: start: 201206
  3. METHOTREXATE [Concomitant]
     Dosage: STRENGTH 15MG, EVERY 8 DAYS
  4. FOLIC ACID [Concomitant]
     Dosage: STRENGTH 5MG, TWICE WEEKLY
  5. REUQUINOL [Concomitant]
     Dosage: STRENGTH 400MG, ONCE DAILY
  6. ARAVA [Concomitant]
     Dosage: UNSPECIFIED DOSE, IN ALTERNATE DAYS
  7. OMEPRAZOLE [Concomitant]
     Dosage: 20 MG, 1X/DAY
  8. DEFLAZACORT [Concomitant]
     Dosage: A HALF OF TABLET OF 6MG (3MG) EVERY DAY

REACTIONS (4)
  - Rheumatoid arthritis [Not Recovered/Not Resolved]
  - Oedema peripheral [Not Recovered/Not Resolved]
  - Inflammation [Not Recovered/Not Resolved]
  - Application site erythema [Unknown]
